FAERS Safety Report 4639003-0 (Version None)
Quarter: 2005Q2

REPORT INFORMATION
  Report Type: 
  Country: None (occurrence: None)
  Receive Date: 20050415
  Receipt Date: 20050415
  Transmission Date: 20051028
  Serious: Yes (Hospitalization)
  Sender: FDA-Public Use
  Company Number: None

PATIENT
  Age: 11 Year
  Sex: Female

DRUGS (1)
  1. CUPRIMINE [Suspect]
     Indication: HEPATO-LENTICULAR DEGENERATION
     Dosage: 4 CAPS PO DAILY
     Route: 048
     Dates: start: 20040325

REACTIONS (6)
  - DROOLING [None]
  - DYSARTHRIA [None]
  - GAIT DISTURBANCE [None]
  - MICROGRAPHIA [None]
  - MUSCLE SPASMS [None]
  - NEUTROPENIA [None]
